FAERS Safety Report 9333449 (Version 1)
Quarter: 2013Q2

REPORT INFORMATION
  Report Type: Spontaneous
  Country: US (occurrence: None)
  Receive Date: 20130604
  Receipt Date: 20130604
  Transmission Date: 20140414
  Serious: Yes (Other)
  Sender: FDA-Public Use
  Company Number: US-ALSI-201300140

PATIENT
  Age: 8 Month
  Sex: Female
  Weight: 7 kg

DRUGS (2)
  1. NITROUS OXIDE [Suspect]
     Indication: GENERAL ANAESTHESIA
     Dosage: RESPIRATORY
  2. (ISOFLURANE) [Concomitant]

REACTIONS (4)
  - Neurological decompensation [None]
  - Anaemia megaloblastic [None]
  - Pancytopenia [None]
  - Developmental delay [None]
